FAERS Safety Report 17160324 (Version 4)
Quarter: 2019Q4

REPORT INFORMATION
  Report Type: Report from Study
  Country: JP (occurrence: JP)
  Receive Date: 20191216
  Receipt Date: 20191227
  Transmission Date: 20200122
  Serious: Yes (Hospitalization)
  Sender: FDA-Public Use
  Company Number: JP-PFIZER INC-2019537883

PATIENT
  Age: 8 Year
  Sex: Male
  Weight: 23 kg

DRUGS (3)
  1. MYDRIN-M [Concomitant]
     Active Substance: TROPICAMIDE
     Indication: VISUAL ACUITY REDUCED
     Dosage: UNK
     Route: 065
     Dates: start: 20190429
  2. SIROLIMUS. [Suspect]
     Active Substance: SIROLIMUS
     Indication: FIBRODYSPLASIA OSSIFICANS PROGRESSIVA
     Dosage: 1 MG, 1X/DAY
     Route: 048
     Dates: start: 20181128, end: 20191205
  3. BLINDED THERAPY [Suspect]
     Active Substance: INVESTIGATIONAL PRODUCT
     Indication: FIBRODYSPLASIA OSSIFICANS PROGRESSIVA
     Dosage: 1 DF, 1X/DAY
     Route: 048
     Dates: start: 20180612, end: 20181127

REACTIONS (1)
  - Superior mesenteric artery syndrome [Recovering/Resolving]

NARRATIVE: CASE EVENT DATE: 20191130
